FAERS Safety Report 15501232 (Version 1)
Quarter: 2018Q4

REPORT INFORMATION
  Report Type: Spontaneous
  Country: US (occurrence: US)
  Receive Date: 20181015
  Receipt Date: 20181015
  Transmission Date: 20190205
  Serious: No
  Sender: FDA-Public Use
  Company Number: US-SUNOVION-2018SUN003810

PATIENT
  Age: 52 Year
  Sex: Female
  Weight: 62.59 kg

DRUGS (6)
  1. CYMBALTA [Concomitant]
     Active Substance: DULOXETINE HYDROCHLORIDE
     Indication: DEPRESSION
     Dosage: UNK
     Dates: start: 201511, end: 201808
  2. MELATONIN [Concomitant]
     Active Substance: MELATONIN
     Dosage: 0.5 MG, HS
     Route: 048
     Dates: start: 201801
  3. LUNESTA [Suspect]
     Active Substance: ESZOPICLONE
     Indication: INSOMNIA
     Dosage: 3 MG, HS
     Route: 048
     Dates: start: 2015, end: 201801
  4. LUNESTA [Suspect]
     Active Substance: ESZOPICLONE
     Dosage: 2 MG, HS
     Route: 048
     Dates: start: 20180806, end: 20180813
  5. LUNESTA [Suspect]
     Active Substance: ESZOPICLONE
     Dosage: 1 MG, HS
     Route: 048
     Dates: start: 20180813, end: 20180820
  6. METHYLPHENIDATE. [Concomitant]
     Active Substance: METHYLPHENIDATE
     Indication: POST CONCUSSION SYNDROME
     Dosage: 20 MG, QD
     Route: 048
     Dates: start: 2016

REACTIONS (10)
  - Coordination abnormal [Unknown]
  - Time perception altered [Unknown]
  - Concussion [Unknown]
  - Withdrawal syndrome [Not Recovered/Not Resolved]
  - Cognitive disorder [Not Recovered/Not Resolved]
  - Anger [Recovered/Resolved]
  - Insomnia [Not Recovered/Not Resolved]
  - Road traffic accident [Recovered/Resolved]
  - Illusion [Not Recovered/Not Resolved]
  - Balance disorder [Not Recovered/Not Resolved]

NARRATIVE: CASE EVENT DATE: 20160531
